FAERS Safety Report 7817460 (Version 5)
Quarter: 2013Q2

REPORT INFORMATION
  Report Type: Spontaneous
  Country: GB (occurrence: GB)
  Receive Date: 20110217
  Receipt Date: 20130530
  Transmission Date: 20140414
  Serious: Yes (Congenital Anomaly)
  Sender: FDA-Public Use
  Company Number: GB-MYLANLABS-2011S1003664

PATIENT
  Age: 1 Month
  Sex: Female
  Weight: 3.46 kg

DRUGS (5)
  1. OMEPRAZOLE [Suspect]
     Route: 064
  2. CO-CODAMOL [Suspect]
     Route: 064
  3. FOLIC ACID [Suspect]
     Route: 064
  4. HYDROXOCOBALAMIN [Suspect]
     Route: 064
  5. LYRICA [Suspect]
     Route: 064

REACTIONS (3)
  - Developmental hip dysplasia [Unknown]
  - Pelvic deformity [Unknown]
  - Foetal exposure during pregnancy [Recovered/Resolved]
